FAERS Safety Report 25920334 (Version 1)
Quarter: 2025Q4

REPORT INFORMATION
  Report Type: Spontaneous
  Country: CA (occurrence: CA)
  Receive Date: 20251014
  Receipt Date: 20251014
  Transmission Date: 20260117
  Serious: Yes (Death, Other)
  Sender: AMGEN
  Company Number: CA-AMGEN-CANSP2025201152

PATIENT

DRUGS (3)
  1. CARFILZOMIB [Suspect]
     Active Substance: CARFILZOMIB
     Indication: Plasma cell myeloma refractory
     Dosage: UNK (20MG/M^2 INTRAVENOUSLY ON CYCLE 1 DAY 1, THEN 70 MG/M^2 ON DAYS 8 AND 15 OF CYCLE 1 AND DAYS 1,
     Route: 040
  2. TOLODODEKIN ALFA [Suspect]
     Active Substance: TOLODODEKIN ALFA
     Indication: Plasma cell myeloma refractory
     Dosage: UNK 1,800 MG CO-FORMULATED  WITH RECOMBINANT HUMAN HYALURONIDASE PH20  ON DAYS 1, 8, 15, AND 22 OF C
     Route: 058
  3. DEXAMETHASONE [Suspect]
     Active Substance: DEXAMETHASONE
     Indication: Plasma cell myeloma refractory
     Dosage: UNK 40 MG INTRAVENOUSLY OR ORALLY ON DAYS 1, 8, 15 AND 22 OF CYCLES 1-9, THEN DAYS 1, 8, AND 15 OF C
     Route: 065

REACTIONS (26)
  - COVID-19 [Fatal]
  - Cardiac failure [Fatal]
  - Pulmonary embolism [Fatal]
  - General physical health deterioration [Fatal]
  - Thrombocytopenia [Unknown]
  - Neutropenia [Unknown]
  - Renal impairment [Unknown]
  - Plasma cell myeloma refractory [Unknown]
  - Anaemia [Unknown]
  - Lymphopenia [Unknown]
  - Asthenia [Unknown]
  - Pyrexia [Unknown]
  - Upper respiratory tract infection [Unknown]
  - Dyspnoea [Unknown]
  - Back pain [Unknown]
  - Diarrhoea [Unknown]
  - Hypertension [Unknown]
  - Insomnia [Unknown]
  - Headache [Unknown]
  - Therapy partial responder [Unknown]
  - Vomiting [Unknown]
  - Nausea [Unknown]
  - Cough [Unknown]
  - Fatigue [Unknown]
  - Oedema peripheral [Unknown]
  - Therapy non-responder [Unknown]
